FAERS Safety Report 5708776-8 (Version None)
Quarter: 2008Q2

REPORT INFORMATION
  Report Type: 
  Country: None (occurrence: None)
  Receive Date: 20080416
  Receipt Date: 20080404
  Transmission Date: 20081010
  Serious: Yes (Death, Hospitalization, Other)
  Sender: FDA-Public Use
  Company Number: 2008-00314

PATIENT
  Age: 72 Year
  Sex: Female
  Weight: 49 kg

DRUGS (13)
  1. VELCADE [Suspect]
     Indication: MULTIPLE MYELOMA
     Dosage: 2 MG, INTRAVENOUS
     Route: 042
     Dates: start: 20071022, end: 20080111
  2. DEXAMETHASONE [Concomitant]
  3. METOCLOPRAMIDE [Concomitant]
  4. CLOPIDOGREL [Concomitant]
  5. TIOTROPIUM (TIOTROPIUM) [Concomitant]
  6. SYMBICORT [Concomitant]
  7. ALLOPURINOL [Concomitant]
  8. VITAMIN B [Concomitant]
  9. NICORET (NICOTINE RESIN) PATCH [Concomitant]
  10. RANITIDINE [Concomitant]
  11. CHLORHEXIDINE (CHLORHEXIDINE) [Concomitant]
  12. DIFFLAM (BENZYDAMINE HYDROCHLORIDE) [Concomitant]
  13. CO-CODAMOL (CODEINE PHOSPHATE, PARACETAMOL) TABLET [Concomitant]

REACTIONS (9)
  - AUTONOMIC NEUROPATHY [None]
  - BALANCE DISORDER [None]
  - DIZZINESS [None]
  - DRUG INEFFECTIVE [None]
  - HYPONATRAEMIA [None]
  - INAPPROPRIATE ANTIDIURETIC HORMONE SECRETION [None]
  - ORTHOSTATIC HYPOTENSION [None]
  - PARAESTHESIA [None]
  - VISION BLURRED [None]
